FAERS Safety Report 17437631 (Version 2)
Quarter: 2020Q2

REPORT INFORMATION
  Report Type: Report from Study
  Country: FR (occurrence: FR)
  Receive Date: 20200219
  Receipt Date: 20200507
  Transmission Date: 20200713
  Serious: Yes (Death, Other)
  Sender: FDA-Public Use
  Company Number: FR-JAZZ-2020-FR-002433

PATIENT

DRUGS (3)
  1. DEFITELIO [Suspect]
     Active Substance: DEFIBROTIDE SODIUM
     Dosage: 25 MG/KG/DAY
     Route: 042
     Dates: start: 20191203, end: 20191218
  2. DEFITELIO [Suspect]
     Active Substance: DEFIBROTIDE SODIUM
     Dosage: 25 MG/KG/DAY
     Route: 042
     Dates: start: 20191119, end: 20191129
  3. DEFITELIO [Suspect]
     Active Substance: DEFIBROTIDE SODIUM
     Indication: VENOOCCLUSIVE LIVER DISEASE
     Dosage: UNKNOWN THERAPY, BEFORE 15-JUL-2014
     Dates: start: 2014

REACTIONS (3)
  - Off label use [Unknown]
  - Acute myeloid leukaemia recurrent [Fatal]
  - Gastrointestinal haemorrhage [Unknown]

NARRATIVE: CASE EVENT DATE: 201911
